FAERS Safety Report 9287740 (Version 6)
Quarter: 2014Q2

REPORT INFORMATION
  Report Type: Report from Study
  Country: NL (occurrence: NL)
  Receive Date: 20130514
  Receipt Date: 20140618
  Transmission Date: 20141212
  Serious: Yes (Hospitalization)
  Sender: FDA-Public Use
  Company Number: NL-BAYER-2013-055870

PATIENT
  Sex: Male
  Weight: 78.4 kg

DRUGS (9)
  1. REGORAFENIB [Suspect]
     Indication: COLORECTAL CANCER
     Dosage: 160 MG, QD
     Route: 048
     Dates: start: 20130415, end: 20130420
  2. REGORAFENIB [Suspect]
     Indication: COLORECTAL CANCER
     Dosage: 120 MG, QD
     Route: 048
     Dates: start: 20130517, end: 20131003
  3. PANTOPRAZOLE [Concomitant]
     Indication: DYSPEPSIA
     Dosage: 40 MG, QD
     Route: 048
     Dates: start: 20130429, end: 20130430
  4. MOVICOLON [Concomitant]
     Indication: DYSPEPSIA
     Dosage: TOTAL DAILY DOSE 1 SATCHET
     Route: 048
     Dates: start: 20130430, end: 20130501
  5. MICROLAX [SODIUM CITRATE,SODIUM LAURYL SULFOACETATE] [Concomitant]
     Dosage: 1-2XOD PRN
  6. SUCRALFATE [Concomitant]
     Indication: DYSPEPSIA
     Dosage: TOTAL DAILY DOSE 0.2 MG/ML
     Route: 048
     Dates: start: 20130429, end: 20130501
  7. ACETYLSALICYLIC ACID [Concomitant]
     Indication: PAIN
     Dosage: TOTAL DAILY DOSE 00 MG
     Route: 048
     Dates: start: 20130429, end: 20130501
  8. LISINOPRIL [Concomitant]
     Indication: CARDIAC FAILURE CONGESTIVE
     Dosage: TOTAL DAILY DOSE 20 MG
     Route: 048
     Dates: start: 20130429, end: 20130501
  9. TEMAZEPAM [Concomitant]
     Indication: INSOMNIA
     Dosage: TOTAL DAILY DOSE 10 MG
     Route: 048
     Dates: start: 20130429, end: 20130501

REACTIONS (2)
  - Oesophagitis [Recovered/Resolved with Sequelae]
  - Oesophageal haemorrhage [Recovered/Resolved]
